FAERS Safety Report 20421600 (Version 1)
Quarter: 2022Q1

REPORT INFORMATION
  Report Type: Spontaneous
  Country: NL (occurrence: NL)
  Receive Date: 20220203
  Receipt Date: 20220203
  Transmission Date: 20220424
  Serious: Yes (Hospitalization, Other)
  Sender: FDA-Public Use
  Company Number: NL-COLLEGIUM PHARMACEUTICAL, INC.-2022CGM00065

PATIENT
  Age: 35 Year
  Sex: Male

DRUGS (1)
  1. OXYCODONE [Suspect]
     Active Substance: OXYCODONE
     Route: 042

REACTIONS (5)
  - Incorrect route of product administration [Recovered/Resolved]
  - Pulmonary granuloma [Unknown]
  - Pulmonary alveolar haemorrhage [Unknown]
  - Disseminated intravascular coagulation [Unknown]
  - Ischaemic hepatitis [Unknown]
